FAERS Safety Report 4439958-3 (Version None)
Quarter: 2004Q3

REPORT INFORMATION
  Report Type: 
  Country: None (occurrence: None)
  Receive Date: 20040831
  Receipt Date: 20040517
  Transmission Date: 20050211
  Serious: No
  Sender: FDA-Public Use
  Company Number: 701831

PATIENT
  Age: 40 Year
  Sex: Female
  Weight: 70.3075 kg

DRUGS (2)
  1. AMEVIVE [Suspect]
     Indication: GRANULOMA ANNULARE
     Dosage: 15 MG QW IM
     Route: 030
     Dates: end: 20040218
  2. TOPICAL STEROIDS [Concomitant]

REACTIONS (2)
  - CD4 LYMPHOCYTES DECREASED [None]
  - FATIGUE [None]
